FAERS Safety Report 11492989 (Version 2)
Quarter: 2016Q2

REPORT INFORMATION
  Report Type: Report from Study
  Country: US (occurrence: US)
  Receive Date: 20150911
  Receipt Date: 20160606
  Transmission Date: 20160815
  Serious: Yes (Hospitalization)
  Sender: FDA-Public Use
  Company Number: US-AMGEN-USASP2015093659

PATIENT
  Age: 44 Year
  Sex: Male

DRUGS (1)
  1. ENBREL [Suspect]
     Active Substance: ETANERCEPT
     Indication: ANKYLOSING SPONDYLITIS
     Dosage: 50 UNK, QWK
     Route: 065
     Dates: start: 20150329, end: 20150828

REACTIONS (4)
  - Crohn^s disease [Recovering/Resolving]
  - Intervertebral disc disorder [Recovering/Resolving]
  - Abdominal pain [Unknown]
  - Neoplasm malignant [Recovering/Resolving]

NARRATIVE: CASE EVENT DATE: 2015
